FAERS Safety Report 19572885 (Version 1)
Quarter: 2021Q3

REPORT INFORMATION
  Report Type: Spontaneous
  Country: US (occurrence: US)
  Receive Date: 20210716
  Receipt Date: 20210716
  Transmission Date: 20211014
  Serious: No
  Sender: FDA-Public Use
  Company Number: US-ASTRAZENECA-2021A617518

PATIENT
  Age: 58 Year
  Sex: Female
  Weight: 49.9 kg

DRUGS (2)
  1. SYMBICORT [Suspect]
     Active Substance: BUDESONIDE\FORMOTEROL FUMARATE DIHYDRATE
     Indication: ASTHMA
     Dosage: 160MCG/4.5MCG AT 2 INHALATIONS TWICE A DAY FOR ASTHMA.
     Route: 055
     Dates: end: 202004
  2. SYMBICORT [Suspect]
     Active Substance: BUDESONIDE\FORMOTEROL FUMARATE DIHYDRATE
     Indication: ASTHMA
     Dosage: 160MCG/4.5MCG AT 2 INHALATIONS TWICE A DAY FOR ASTHMA.
     Route: 055
     Dates: start: 202007, end: 2021

REACTIONS (3)
  - Mouth ulceration [Not Recovered/Not Resolved]
  - Dyspnoea [Recovered/Resolved]
  - Oral pain [Not Recovered/Not Resolved]

NARRATIVE: CASE EVENT DATE: 2020
